FAERS Safety Report 20376472 (Version 1)
Quarter: 2022Q1

REPORT INFORMATION
  Report Type: Spontaneous
  Country: FR (occurrence: None)
  Receive Date: 20220125
  Receipt Date: 20220125
  Transmission Date: 20220424
  Serious: Yes (Hospitalization)
  Sender: FDA-Public Use
  Company Number: FR-Merck Healthcare KGaA-9294246

PATIENT
  Age: 68 Year
  Sex: Female

DRUGS (1)
  1. LEVOTHYROXINE [Suspect]
     Active Substance: LEVOTHYROXINE
     Indication: Product used for unknown indication
     Dosage: LEVOTHYROX OLD FORMULATION

REACTIONS (4)
  - Atrial enlargement [Unknown]
  - Left ventricular failure [Unknown]
  - Atrial fibrillation [Unknown]
  - Arrhythmia [Recovering/Resolving]

NARRATIVE: CASE EVENT DATE: 20160101
